FAERS Safety Report 12982074 (Version 1)
Quarter: 2016Q4

REPORT INFORMATION
  Report Type: Spontaneous
  Country: US (occurrence: US)
  Receive Date: 20161129
  Receipt Date: 20161129
  Transmission Date: 20170207
  Serious: Yes (Other)
  Sender: FDA-Public Use
  Company Number: US-MALLINCKRODT-T201605999

PATIENT
  Sex: Male

DRUGS (22)
  1. AMITIZA [Concomitant]
     Active Substance: LUBIPROSTONE
  2. ATIVAN [Concomitant]
     Active Substance: LORAZEPAM
  3. VESICARE [Concomitant]
     Active Substance: SOLIFENACIN SUCCINATE
  4. TYLENOL [Concomitant]
     Active Substance: ACETAMINOPHEN
  5. ABILIFY [Concomitant]
     Active Substance: ARIPIPRAZOLE
  6. CELEXA [Concomitant]
     Active Substance: CITALOPRAM HYDROBROMIDE
  7. ASPIRIN. [Concomitant]
     Active Substance: ASPIRIN
  8. NORVASC [Concomitant]
     Active Substance: AMLODIPINE BESYLATE
  9. LACOSAMIDE. [Concomitant]
     Active Substance: LACOSAMIDE
  10. VIMPAT [Concomitant]
     Active Substance: LACOSAMIDE
  11. SINGULAIR [Concomitant]
     Active Substance: MONTELUKAST SODIUM
  12. KEPPRA [Concomitant]
     Active Substance: LEVETIRACETAM
  13. BACLOFEN. [Concomitant]
     Active Substance: BACLOFEN
  14. MACRODANTIN [Concomitant]
     Active Substance: NITROFURANTOIN
  15. GABLOFEN [Suspect]
     Active Substance: BACLOFEN
     Indication: HEAD INJURY
  16. AZTOR [Concomitant]
  17. DOXYCYCLINE. [Concomitant]
     Active Substance: DOXYCYCLINE
  18. LACTULOSE. [Concomitant]
     Active Substance: LACTULOSE
  19. LASIX [Concomitant]
     Active Substance: FUROSEMIDE
  20. GABLOFEN [Suspect]
     Active Substance: BACLOFEN
     Indication: MUSCLE SPASTICITY
     Dosage: 1475 ?G, QD
     Route: 037
     Dates: end: 20160520
  21. BACTRIM [Concomitant]
     Active Substance: SULFAMETHOXAZOLE\TRIMETHOPRIM
  22. LAMICTAL [Concomitant]
     Active Substance: LAMOTRIGINE

REACTIONS (2)
  - Wound infection bacterial [Recovered/Resolved]
  - Foreign body [Recovered/Resolved]
